FAERS Safety Report 18005974 (Version 5)
Quarter: 2021Q1

REPORT INFORMATION
  Report Type: Report from Study
  Country: CO (occurrence: CO)
  Receive Date: 20200710
  Receipt Date: 20210329
  Transmission Date: 20210419
  Serious: Yes (Hospitalization)
  Sender: FDA-Public Use
  Company Number: CO-ASTELLAS-2019US015832

PATIENT
  Age: 15 Year
  Sex: Male
  Weight: 51 kg

DRUGS (16)
  1. MYCOPHENOLATE [Concomitant]
     Active Substance: MYCOPHENOLIC ACID
     Dosage: 750 MG IN MORNING AND 500 MG AT NIGHT
     Route: 048
  2. TACROLIMUS. [Suspect]
     Active Substance: TACROLIMUS
     Route: 048
     Dates: start: 20201122, end: 20201125
  3. DEFLAZACORT [Concomitant]
     Active Substance: DEFLAZACORT
     Route: 048
  4. TACROLIMUS. [Suspect]
     Active Substance: TACROLIMUS
     Route: 048
     Dates: end: 20201120
  5. TACROLIMUS. [Suspect]
     Active Substance: TACROLIMUS
     Route: 048
     Dates: start: 20210222
  6. ESOMEPRAZOLE. [Suspect]
     Active Substance: ESOMEPRAZOLE MAGNESIUM
     Indication: PRODUCT USED FOR UNKNOWN INDICATION
     Dosage: UNK UNK, ONCE DAILY
     Route: 065
  7. DEZACOR [Concomitant]
     Active Substance: DEFLAZACORT
     Indication: PRODUCT USED FOR UNKNOWN INDICATION
     Route: 065
  8. TACROLIMUS. [Suspect]
     Active Substance: TACROLIMUS
     Route: 048
     Dates: start: 20140721
  9. MYCOPHENOLATE [Concomitant]
     Active Substance: MYCOPHENOLIC ACID
     Indication: TRANSPLANT
     Route: 048
     Dates: start: 20140621
  10. TACROLIMUS. [Suspect]
     Active Substance: TACROLIMUS
     Route: 048
  11. TACROLIMUS. [Suspect]
     Active Substance: TACROLIMUS
     Indication: RENAL TRANSPLANT
     Route: 048
  12. TACROLIMUS. [Suspect]
     Active Substance: TACROLIMUS
     Route: 048
     Dates: start: 20140621
  13. TACROLIMUS. [Suspect]
     Active Substance: TACROLIMUS
     Route: 048
     Dates: start: 20201201
  14. TACROLIMUS. [Suspect]
     Active Substance: TACROLIMUS
     Route: 048
     Dates: start: 20210220, end: 20210221
  15. DEFLAZACORT [Concomitant]
     Active Substance: DEFLAZACORT
     Indication: TRANSPLANT
     Dosage: 6 MG (1 DF), ONCE DAILY (EVERY 24 HOURS)
     Route: 048
     Dates: start: 20140621
  16. VITAMIN D [COLECALCIFEROL] [Concomitant]
     Active Substance: CHOLECALCIFEROL
     Indication: PRODUCT USED FOR UNKNOWN INDICATION
     Route: 065

REACTIONS (7)
  - Oropharyngeal pain [Recovered/Resolved]
  - Gastritis [Recovered/Resolved]
  - Weight increased [Not Recovered/Not Resolved]
  - Bone pain [Recovered/Resolved]
  - Diarrhoea [Recovered/Resolved]
  - Immunosuppressant drug level increased [Recovering/Resolving]
  - Abdominal pain upper [Recovered/Resolved]

NARRATIVE: CASE EVENT DATE: 20190304
